FAERS Safety Report 5542058-2 (Version None)
Quarter: 2007Q4

REPORT INFORMATION
  Report Type: 
  Country: None (occurrence: None)
  Receive Date: 20071210
  Receipt Date: 20071130
  Transmission Date: 20080405
  Serious: Yes (Hospitalization, Disabling)
  Sender: FDA-Public Use
  Company Number: AT-ASTRAZENECA-2007PK00800

PATIENT
  Age: 16204 Day
  Sex: Male
  Weight: 88 kg

DRUGS (6)
  1. CRESTOR [Suspect]
     Indication: HYPERCHOLESTEROLAEMIA
     Route: 048
     Dates: start: 20060301, end: 20060901
  2. CRESTOR [Suspect]
     Route: 048
     Dates: start: 20070212, end: 20070411
  3. CRESTOR [Suspect]
     Route: 048
     Dates: end: 20071001
  4. BEZAFIBRAT RET 400 [Concomitant]
     Indication: HYPERTRIGLYCERIDAEMIA
     Route: 048
     Dates: start: 20020101
  5. EZETROL [Concomitant]
     Indication: HYPERCHOLESTEROLAEMIA
     Dates: start: 20070414, end: 20070801
  6. BEZALIP RET [Concomitant]
     Indication: HYPERLIPIDAEMIA
     Route: 048
     Dates: start: 20060301

REACTIONS (5)
  - MUSCLE INJURY [None]
  - SOFT TISSUE NECROSIS [None]
  - SURGERY [None]
  - TENDON RUPTURE [None]
  - TENDONITIS [None]
